FAERS Safety Report 7486948-2 (Version None)
Quarter: 2011Q2

REPORT INFORMATION
  Report Type: 
  Country: None (occurrence: None)
  Receive Date: 20110517
  Receipt Date: 20101004
  Transmission Date: 20111010
  Serious: No
  Sender: FDA-Public Use
  Company Number: US-AMGEN-TCS437095

PATIENT
  Age: 64 Year
  Sex: Female
  Weight: 81.3 kg

DRUGS (6)
  1. ENBREL [Suspect]
     Indication: RHEUMATOID ARTHRITIS
     Dosage: 50 MG, QWK
     Route: 058
     Dates: start: 20100810, end: 20100916
  2. SERTRALINE HYDROCHLORIDE [Concomitant]
     Indication: DEPRESSION
     Dosage: 25 MG, QD
  3. LORAZEPAM [Concomitant]
     Indication: ANXIETY
     Dosage: 1 MG, BID
  4. METHOTREXATE [Concomitant]
     Dosage: UNK UNK, UNK
  5. METOCLOPRAMIDE [Concomitant]
     Dosage: 5 MG, PRN
  6. RABEPRAZOLE SODIUM [Concomitant]
     Dosage: 20 MG, PRN

REACTIONS (7)
  - INJECTION SITE ERYTHEMA [None]
  - INJECTION SITE REACTION [None]
  - INJECTION SITE URTICARIA [None]
  - INJECTION SITE WARMTH [None]
  - INJECTION SITE SWELLING [None]
  - VISION BLURRED [None]
  - PRURITUS [None]
